FAERS Safety Report 6260760-4 (Version None)
Quarter: 2009Q3

REPORT INFORMATION
  Report Type: 
  Country: None (occurrence: None)
  Receive Date: 20090706
  Receipt Date: 20090622
  Transmission Date: 20100115
  Serious: Yes (Hospitalization)
  Sender: FDA-Public Use
  Company Number: SPI200900141

PATIENT
  Age: 55 Year
  Sex: Male
  Weight: 73.5 kg

DRUGS (10)
  1. AMITIZA [Suspect]
     Indication: CONSTIPATION
     Dosage: 24 MCG, BID, ORAL
     Route: 048
     Dates: start: 20070101, end: 20090201
  2. RITADINE [Concomitant]
  3. TAPAZOLE [Concomitant]
  4. ALLEREX [Concomitant]
  5. PATANASE [Concomitant]
  6. FLONASE [Concomitant]
  7. SKELAXIN /00611501/ (METAXALONE) [Concomitant]
  8. PREVACID [Concomitant]
  9. MAXAIR [Concomitant]
  10. COLACE  (DOCUSATE SODIUM) [Concomitant]

REACTIONS (2)
  - COLITIS [None]
  - LARGE INTESTINAL ULCER [None]
